FAERS Safety Report 22047572 (Version 1)
Quarter: 2023Q1

REPORT INFORMATION
  Report Type: Spontaneous
  Country: CA (occurrence: CA)
  Receive Date: 20230301
  Receipt Date: 20230301
  Transmission Date: 20230418
  Serious: Yes (Disabling, Other)
  Sender: FDA-Public Use
  Company Number: CA-002147023-NVSC2023CA040863

PATIENT
  Age: 72 Year
  Sex: Female

DRUGS (36)
  1. RITUXIMAB [Interacting]
     Active Substance: RITUXIMAB
     Indication: Rheumatoid arthritis
     Dosage: UNK
     Route: 065
  2. RITUXIMAB [Interacting]
     Active Substance: RITUXIMAB
     Dosage: UNK
     Route: 042
  3. LEFLUNOMIDE [Interacting]
     Active Substance: LEFLUNOMIDE
     Indication: Rheumatoid arthritis
     Dosage: 20 MG
     Route: 048
  4. LEFLUNOMIDE [Interacting]
     Active Substance: LEFLUNOMIDE
     Dosage: 20 MG
     Route: 048
  5. LEFLUNOMIDE [Interacting]
     Active Substance: LEFLUNOMIDE
     Dosage: 20 MG, QD, 1 EVERY 1 DAYS
     Route: 065
  6. LEFLUNOMIDE [Interacting]
     Active Substance: LEFLUNOMIDE
     Dosage: 10 MG
     Route: 048
  7. METHOTREXATE [Interacting]
     Active Substance: METHOTREXATE
     Indication: Product used for unknown indication
     Dosage: 25 MG
     Route: 058
  8. METHOTREXATE [Interacting]
     Active Substance: METHOTREXATE
     Dosage: 20 MG
     Route: 058
  9. METHOTREXATE [Interacting]
     Active Substance: METHOTREXATE
     Dosage: 7.5 MG
     Route: 058
  10. METHOTREXATE [Interacting]
     Active Substance: METHOTREXATE
     Dosage: 10 MG
     Route: 058
  11. METHOTREXATE [Interacting]
     Active Substance: METHOTREXATE
     Dosage: 2.5 MG
     Route: 058
  12. ACTEMRA [Interacting]
     Active Substance: TOCILIZUMAB
     Indication: Product used for unknown indication
     Dosage: UNK
     Route: 065
  13. ARAVA [Interacting]
     Active Substance: LEFLUNOMIDE
     Indication: Rheumatoid arthritis
     Dosage: 20 MG
     Route: 048
  14. ARAVA [Interacting]
     Active Substance: LEFLUNOMIDE
     Indication: Arthritis
     Dosage: UNK
     Route: 065
  15. ARAVA [Interacting]
     Active Substance: LEFLUNOMIDE
     Dosage: UNK
     Route: 065
  16. ARAVA [Interacting]
     Active Substance: LEFLUNOMIDE
     Dosage: 50 MG
     Route: 065
  17. ARAVA [Interacting]
     Active Substance: LEFLUNOMIDE
     Dosage: 20 MG
     Route: 065
  18. ARAVA [Interacting]
     Active Substance: LEFLUNOMIDE
     Indication: Rheumatoid arthritis
     Dosage: 10 MG
     Route: 065
  19. ARAVA [Interacting]
     Active Substance: LEFLUNOMIDE
     Indication: Arthritis
  20. CELECOXIB [Interacting]
     Active Substance: CELECOXIB
     Indication: Rheumatoid arthritis
     Dosage: UNK
     Route: 065
  21. CELECOXIB [Interacting]
     Active Substance: CELECOXIB
     Dosage: UNK
     Route: 065
  22. CELECOXIB [Interacting]
     Active Substance: CELECOXIB
     Dosage: 50 MG, QW, 1 EVERY 1 WEEKS
     Route: 065
  23. ENBREL [Interacting]
     Active Substance: ETANERCEPT
     Indication: Rheumatoid arthritis
     Dosage: 50 MG, QW, 1 EVERY 1 WEEKS
     Route: 058
  24. HUMIRA [Interacting]
     Active Substance: ADALIMUMAB
     Indication: Product used for unknown indication
     Dosage: UNK
     Route: 058
  25. ORENCIA [Interacting]
     Active Substance: ABATACEPT
     Indication: Rheumatoid arthritis
     Dosage: 250 MG, POWDER FOR SOLUTION FOR INFUSION
     Route: 058
  26. ORENCIA [Interacting]
     Active Substance: ABATACEPT
     Dosage: UNK
     Route: 065
  27. PLAQUENIL [Interacting]
     Active Substance: HYDROXYCHLOROQUINE SULFATE
     Indication: Rheumatoid arthritis
     Dosage: 400 MG, QD, 1 EVERY 1 DAYS
     Route: 048
  28. PLAQUENIL [Interacting]
     Active Substance: HYDROXYCHLOROQUINE SULFATE
     Dosage: 300 MG
     Route: 048
  29. PLAQUENIL [Interacting]
     Active Substance: HYDROXYCHLOROQUINE SULFATE
     Indication: Rheumatoid arthritis
     Dosage: 300 MG
     Route: 048
  30. PREDNISONE [Interacting]
     Active Substance: PREDNISONE
     Indication: Rheumatoid arthritis
     Dosage: UNK
     Route: 065
  31. PREDNISONE [Interacting]
     Active Substance: PREDNISONE
     Indication: Arthritis
     Dosage: UNK
     Route: 065
  32. SULFASALAZINE [Interacting]
     Active Substance: SULFASALAZINE
     Indication: Rheumatoid arthritis
     Dosage: 500 MG
     Route: 065
  33. SULFASALAZINE [Interacting]
     Active Substance: SULFASALAZINE
     Dosage: 2 G
     Route: 065
  34. SULFASALAZINE [Interacting]
     Active Substance: SULFASALAZINE
     Dosage: 2 G, QD, 1 EVERY 1 DAYS
     Route: 065
  35. TOFACITINIB CITRATE [Interacting]
     Active Substance: TOFACITINIB CITRATE
     Indication: Product used for unknown indication
     Dosage: UNK
     Route: 065
  36. XELJANZ [Concomitant]
     Active Substance: TOFACITINIB CITRATE
     Indication: Product used for unknown indication
     Dosage: 5 MG, Q12H, 1 EVERY 12 HOURS
     Route: 048

REACTIONS (23)
  - Bone swelling [Not Recovered/Not Resolved]
  - Condition aggravated [Not Recovered/Not Resolved]
  - Hepatotoxicity [Not Recovered/Not Resolved]
  - Joint swelling [Not Recovered/Not Resolved]
  - Neoplasm malignant [Not Recovered/Not Resolved]
  - Neoplasm malignant [Not Recovered/Not Resolved]
  - Nausea [Not Recovered/Not Resolved]
  - Swelling [Not Recovered/Not Resolved]
  - Toxicity to various agents [Not Recovered/Not Resolved]
  - Thyroid neoplasm [Not Recovered/Not Resolved]
  - Drug interaction [Not Recovered/Not Resolved]
  - Pain [Not Recovered/Not Resolved]
  - Peripheral swelling [Not Recovered/Not Resolved]
  - Oral candidiasis [Not Recovered/Not Resolved]
  - Rheumatoid arthritis [Not Recovered/Not Resolved]
  - Candida infection [Not Recovered/Not Resolved]
  - Headache [Not Recovered/Not Resolved]
  - Arthralgia [Not Recovered/Not Resolved]
  - Prescribed overdose [Not Recovered/Not Resolved]
  - Therapeutic response decreased [Not Recovered/Not Resolved]
  - Therapeutic product effect decreased [Not Recovered/Not Resolved]
  - Drug ineffective [Not Recovered/Not Resolved]
  - Treatment failure [Not Recovered/Not Resolved]
